FAERS Safety Report 14391027 (Version 1)
Quarter: 2018Q1

REPORT INFORMATION
  Report Type: Spontaneous
  Country: US (occurrence: US)
  Receive Date: 20180116
  Receipt Date: 20180116
  Transmission Date: 20180509
  Serious: No
  Sender: FDA-Public Use
  Company Number: US-PFIZER INC-2018013675

PATIENT
  Age: 61 Year
  Sex: Female

DRUGS (1)
  1. RELPAX [Suspect]
     Active Substance: ELETRIPTAN HYDROBROMIDE
     Indication: MIGRAINE
     Dosage: 2 DF, 1X/DAY [TAKE 2 RELPAX A DAY FOR 3-4 DAYS]
     Dates: start: 2003

REACTIONS (4)
  - Seasonal allergy [Unknown]
  - Condition aggravated [Unknown]
  - Headache [Unknown]
  - Malaise [Unknown]
